FAERS Safety Report 23307298 (Version 2)
Quarter: 2023Q4

REPORT INFORMATION
  Report Type: Other
  Country: IT (occurrence: None)
  Receive Date: 20231218
  Receipt Date: 20231222
  Transmission Date: 20240110
  Serious: Yes (Death)
  Sender: FDA-Public Use
  Company Number: IT-ROCHE-3429932

PATIENT

DRUGS (1)
  1. OBINUTUZUMAB [Suspect]
     Active Substance: OBINUTUZUMAB
     Indication: Product used for unknown indication
     Route: 042
     Dates: start: 20230919

REACTIONS (3)
  - COVID-19 [Fatal]
  - Lymphoma [Fatal]
  - Septic shock [Fatal]
